FAERS Safety Report 4982346-1 (Version None)
Quarter: 2006Q2

REPORT INFORMATION
  Report Type: 
  Country: None (occurrence: None)
  Receive Date: 20060424
  Receipt Date: 20060424
  Transmission Date: 20061013
  Serious: Yes (Life-Threatening, Hospitalization, Other)
  Sender: FDA-Public Use
  Company Number: None

PATIENT
  Age: 16 Month
  Sex: Male
  Weight: 12.5 kg

DRUGS (1)
  1. SUBOXONE [Suspect]
     Indication: ACCIDENTAL EXPOSURE
     Dosage: 1 TAB ONCE BUCCAL
     Route: 002
     Dates: start: 20041111, end: 20041111

REACTIONS (6)
  - ACCIDENTAL DRUG INTAKE BY CHILD [None]
  - BLOOD PRESSURE DECREASED [None]
  - DYSPNOEA [None]
  - MENTAL STATUS CHANGES [None]
  - MIOSIS [None]
  - RESPIRATORY RATE DECREASED [None]
